FAERS Safety Report 26154890 (Version 1)
Quarter: 2025Q4

REPORT INFORMATION
  Report Type: Spontaneous
  Country: US (occurrence: US)
  Receive Date: 20251215
  Receipt Date: 20251215
  Transmission Date: 20260118
  Serious: Yes (Life-Threatening, Hospitalization, Other)
  Sender: ADARE PHARMACEUTICALS
  Company Number: US-ADAREPHARM-2025-US-000108

PATIENT
  Age: 49 Year
  Sex: Male

DRUGS (3)
  1. PROPRANOLOL [Suspect]
     Active Substance: PROPRANOLOL HYDROCHLORIDE
     Indication: Thyrotoxic crisis
     Route: 048
  2. DILTIAZEM [Interacting]
     Active Substance: DILTIAZEM
     Indication: Heart rate increased
     Dosage: BOLUS
     Route: 042
  3. DILTIAZEM [Interacting]
     Active Substance: DILTIAZEM
     Indication: Heart rate increased

REACTIONS (2)
  - Cardiogenic shock [Recovered/Resolved]
  - Potentiating drug interaction [Recovered/Resolved]
